FAERS Safety Report 20775632 (Version 5)
Quarter: 2022Q3

REPORT INFORMATION
  Report Type: Spontaneous
  Country: JP (occurrence: JP)
  Receive Date: 20220502
  Receipt Date: 20220731
  Transmission Date: 20221027
  Serious: Yes (Hospitalization, Other)
  Sender: FDA-Public Use
  Company Number: JP-JNJFOC-20220500598

PATIENT
  Age: 57 Year
  Sex: Female
  Weight: 46.2 kg

DRUGS (3)
  1. PALIPERIDONE PALMITATE [Suspect]
     Active Substance: PALIPERIDONE PALMITATE
     Indication: Schizophrenia
     Dosage: LEFT DELTOID MUSCLE
     Route: 030
     Dates: start: 20220303, end: 20220303
  2. PALIPERIDONE PALMITATE [Suspect]
     Active Substance: PALIPERIDONE PALMITATE
     Indication: Schizophrenia
     Dosage: RIGHT DELTOID MUSCLE
     Route: 030
     Dates: start: 20220310, end: 20220310
  3. PALIPERIDONE PALMITATE [Suspect]
     Active Substance: PALIPERIDONE PALMITATE
     Indication: Schizophrenia
     Dosage: GLUTEAL MUSCLE
     Route: 030
     Dates: start: 20220408, end: 20220408

REACTIONS (3)
  - Neuroleptic malignant syndrome [Recovering/Resolving]
  - Malignant catatonia [Recovering/Resolving]
  - Sepsis [Unknown]

NARRATIVE: CASE EVENT DATE: 20220101
